FAERS Safety Report 9506341 (Version 2)
Quarter: 2014Q1

REPORT INFORMATION
  Report Type: Spontaneous
  Country: US (occurrence: None)
  Receive Date: 20130301
  Receipt Date: 20140304
  Transmission Date: 20141002
  Serious: Yes (Other)
  Sender: FDA-Public Use
  Company Number: RB-44986-2012

PATIENT
  Age: 25 Year
  Sex: Male

DRUGS (5)
  1. SUBOXONE 8 MG [Suspect]
     Indication: PRODUCT USED FOR UNKNOWN INDICATION
     Dosage: UNKNOWN DOSING DETAILS UNKNOWN)
     Dates: start: 201012, end: 201103
  2. SUBOXONE 8 MG [Suspect]
     Indication: DRUG DEPENDENCE
     Dosage: UNKNOWN DOSING DETAILS UNKNOWN)
     Dates: start: 201012, end: 201103
  3. SUBOXONE [Suspect]
     Indication: DRUG DEPENDENCE
     Dates: start: 201012, end: 201103
  4. SUBUTEX 8 MG [Suspect]
     Indication: PRODUCT USED FOR UNKNOWN INDICATION
     Dosage: 1-2
     Dates: start: 2011
  5. NEURONTIN [Concomitant]

REACTIONS (4)
  - Feeling abnormal [None]
  - Malaise [None]
  - Migraine [None]
  - Substance abuse [None]
